FAERS Safety Report 17925891 (Version 2)
Quarter: 2020Q3

REPORT INFORMATION
  Report Type: Report from Study
  Country: None (occurrence: US)
  Receive Date: 20200623
  Receipt Date: 20200707
  Transmission Date: 20201103
  Serious: Yes (Hospitalization)
  Sender: FDA-Public Use
  Company Number: US-ABBVIE-20K-163-3412711-00

PATIENT
  Sex: Male

DRUGS (1)
  1. HUMIRA [Suspect]
     Active Substance: ADALIMUMAB
     Indication: HIDRADENITIS
     Route: 058

REACTIONS (7)
  - Insomnia [Recovering/Resolving]
  - Chest pain [Recovering/Resolving]
  - Prostatic specific antigen increased [Recovering/Resolving]
  - Rash papular [Unknown]
  - Urinary tract infection [Recovering/Resolving]
  - Pulmonary thrombosis [Recovering/Resolving]
  - Skin laceration [Recovered/Resolved]
